FAERS Safety Report 7572328-8 (Version None)
Quarter: 2011Q2

REPORT INFORMATION
  Report Type: 
  Country: None (occurrence: None)
  Receive Date: 20110624
  Receipt Date: 20110620
  Transmission Date: 20111010
  Serious: Yes (Death, Life-Threatening, Other)
  Sender: FDA-Public Use
  Company Number: PHHY2011FR54583

PATIENT
  Sex: Female

DRUGS (10)
  1. BISOPROLOL FUMARATE [Suspect]
     Dosage: 5 MG, QD
  2. PREDNISONE [Concomitant]
     Dosage: 6 MG, QD
  3. ACETAMINOPHEN [Concomitant]
     Dosage: 1 G 3 QD
  4. OMEPRAZOLE [Concomitant]
     Dosage: 20 MG, QD
  5. ATARAX [Concomitant]
     Dosage: 25 MG, QD
  6. CITALOPRAM HYDROBROMIDE [Concomitant]
     Dosage: 5 MG, QD
  7. EXFORGE [Suspect]
     Dosage: UNK UKN, UNK
  8. OROCAL VITAMIN D [Concomitant]
     Dosage: OROCAL 500MG/200IU TABLET (VITAMINE D3) BID
  9. ZOPICLONE [Concomitant]
     Dosage: 7.5 MG, QD
  10. EXELON [Suspect]
     Indication: COGNITIVE DISORDER
     Dosage: 4.6 MG, DAILY
     Route: 062
     Dates: start: 20110411

REACTIONS (3)
  - CEREBROVASCULAR ACCIDENT [None]
  - CARDIAC FAILURE [None]
  - ATRIAL FIBRILLATION [None]
